FAERS Safety Report 5409013-4 (Version None)
Quarter: 2007Q3

REPORT INFORMATION
  Report Type: 
  Country: None (occurrence: None)
  Receive Date: 20070808
  Receipt Date: 20070801
  Transmission Date: 20080115
  Serious: Yes (Hospitalization)
  Sender: FDA-Public Use
  Company Number: BR-SHR-BR-2007-017924

PATIENT
  Age: 53 Year
  Sex: Female

DRUGS (2)
  1. BETAFERON [Suspect]
     Dosage: 8 MIU, 3X/WEEK
     Route: 058
     Dates: start: 19990901
  2. FLUOXETINE [Concomitant]
     Dosage: 1 TAB(S), 1X/DAY
     Route: 048
     Dates: end: 20070801

REACTIONS (5)
  - ASTHENIA [None]
  - HYPOAESTHESIA [None]
  - LIMB DISCOMFORT [None]
  - MULTIPLE SCLEROSIS RELAPSE [None]
  - MUSCULAR WEAKNESS [None]
